FAERS Safety Report 18793451 (Version 1)
Quarter: 2021Q1

REPORT INFORMATION
  Report Type: Spontaneous
  Country: CA (occurrence: CA)
  Receive Date: 20210127
  Receipt Date: 20210127
  Transmission Date: 20210419
  Serious: Yes (Death, Other)
  Sender: FDA-Public Use
  Company Number: CA-AMGEN-CANSP2021009546

PATIENT

DRUGS (1)
  1. NEUPOGEN [Suspect]
     Active Substance: FILGRASTIM
     Indication: NEUTROPENIA
     Dosage: UNK
     Route: 065

REACTIONS (18)
  - Cardiac disorder [Unknown]
  - Rash [Unknown]
  - Sepsis [Fatal]
  - Hepatic failure [Fatal]
  - Portal vein thrombosis [Fatal]
  - Anaemia [Unknown]
  - Off label use [Unknown]
  - Liver transplant rejection [Unknown]
  - Thrombocytopenia [Unknown]
  - Ascites [Unknown]
  - Neuropsychiatric symptoms [Unknown]
  - Biliary sepsis [Unknown]
  - Hepatic encephalopathy [Unknown]
  - Renal failure [Unknown]
  - Hepatitis C [Unknown]
  - Hepatic artery thrombosis [Fatal]
  - Respiratory tract infection [Unknown]
  - Pancreatitis acute [Unknown]
